FAERS Safety Report 9093349 (Version 7)
Quarter: 2014Q2

REPORT INFORMATION
  Report Type: Spontaneous
  Country: US (occurrence: US)
  Receive Date: 20130218
  Receipt Date: 20140430
  Transmission Date: 20141212
  Serious: Yes (Hospitalization, Other)
  Sender: FDA-Public Use
  Company Number: US-009507513-1302USA007780

PATIENT
  Sex: Female
  Weight: 88.44 kg

DRUGS (16)
  1. FOSAMAX [Suspect]
     Indication: OSTEOPENIA
     Dosage: 70 MG, QW
     Route: 048
     Dates: start: 200601, end: 200807
  2. ACTONEL [Suspect]
     Indication: OSTEOPENIA
     Dosage: 150 MG, UNK
     Route: 048
     Dates: start: 200808, end: 201102
  3. VITAMINS (UNSPECIFIED) [Concomitant]
     Dosage: UNK, QD
     Dates: start: 1980
  4. ASCORBIC ACID [Concomitant]
     Dosage: 500 MG, BID
     Dates: start: 1980
  5. CALCIUM (UNSPECIFIED) (+) VITAMIN D (UNSPECIFIED) [Concomitant]
     Dosage: 600MG/200IU BID
     Dates: start: 1980
  6. CALCIUM (UNSPECIFIED) (+) VITAMIN D (UNSPECIFIED) [Concomitant]
     Dosage: 1200 MG/D
  7. UBIDECARENONE [Concomitant]
     Dosage: 30 MG, QD
     Dates: start: 1980
  8. CYANOCOBALAMIN [Concomitant]
     Dosage: 500 MICROGRAM, QD
     Dates: start: 1980
  9. ASPIRIN [Concomitant]
     Dosage: 81 MG, QD
     Dates: start: 1980
  10. VITAMIN D (UNSPECIFIED) [Concomitant]
     Dosage: 400 IU, QD
     Dates: start: 1980
  11. OMEGA-3 MARINE TRIGLYCERIDES [Concomitant]
     Dosage: 1200 MG, BID
     Dates: start: 1980
  12. GLUCOSAMINE [Concomitant]
     Dosage: UNK DF, QD
     Dates: start: 1980
  13. CALCIUM (UNSPECIFIED) [Concomitant]
  14. AMLODIPINE [Concomitant]
     Indication: HYPERTENSION
     Dosage: 5 MG, QD
  15. METOPROLOL [Concomitant]
     Dosage: 50 MG, QD
  16. FUROSEMIDE [Concomitant]
     Indication: HYPERTENSION
     Dosage: 20 MG, QD

REACTIONS (57)
  - Femur fracture [Unknown]
  - Intramedullary rod insertion [Unknown]
  - Femur fracture [Unknown]
  - Intramedullary rod insertion [Unknown]
  - Humerus fracture [Unknown]
  - Basal cell carcinoma [Unknown]
  - Rotator cuff repair [Unknown]
  - Pancreatitis [Unknown]
  - Renal failure acute [Unknown]
  - Low turnover osteopathy [Unknown]
  - Hyperlipidaemia [Unknown]
  - Herpes zoster [Unknown]
  - Spinal column stenosis [Unknown]
  - Osteoarthritis [Unknown]
  - Bursitis [Unknown]
  - Upper-airway cough syndrome [Unknown]
  - Carpal tunnel syndrome [Unknown]
  - Emphysema [Unknown]
  - Hiatus hernia [Unknown]
  - Aortic arteriosclerosis [Unknown]
  - Bone cyst [Unknown]
  - Hepatic cyst [Unknown]
  - Balance disorder [Unknown]
  - Peptic ulcer [Unknown]
  - Gallbladder disorder [Unknown]
  - Haemorrhagic anaemia [Unknown]
  - Hypotension [Unknown]
  - Haemorrhoidal haemorrhage [Unknown]
  - Cataract operation [Unknown]
  - Pollakiuria [Unknown]
  - Urinary incontinence [Unknown]
  - Fracture nonunion [Unknown]
  - Joint effusion [Unknown]
  - Muscle atrophy [Unknown]
  - Muscle haemorrhage [Unknown]
  - Muscle abscess [Unknown]
  - Cardiomegaly [Unknown]
  - Electrocardiogram T wave inversion [Unknown]
  - Bradycardia [Unknown]
  - Chronic respiratory failure [Unknown]
  - Sleep apnoea syndrome [Unknown]
  - Lung disorder [Unknown]
  - Glaucoma [Unknown]
  - Pancreatic disorder [Unknown]
  - Gastrooesophageal reflux disease [Unknown]
  - Constipation [Unknown]
  - Nausea [Unknown]
  - Abdominal pain upper [Unknown]
  - Abdominal pain upper [Not Recovered/Not Resolved]
  - Pain in extremity [Unknown]
  - Back pain [Not Recovered/Not Resolved]
  - Pain in jaw [Unknown]
  - Chest pain [Recovering/Resolving]
  - Abdominal pain lower [Unknown]
  - Constipation [Recovering/Resolving]
  - Back pain [Not Recovered/Not Resolved]
  - Musculoskeletal pain [Unknown]
